FAERS Safety Report 17334359 (Version 1)
Quarter: 2020Q1

REPORT INFORMATION
  Report Type: Report from Study
  Country: JP (occurrence: JP)
  Receive Date: 20200128
  Receipt Date: 20200128
  Transmission Date: 20200409
  Serious: Yes (Other)
  Sender: FDA-Public Use
  Company Number: JP-ROCHE-2528643

PATIENT

DRUGS (2)
  1. BEVACIZUMAB. [Suspect]
     Active Substance: BEVACIZUMAB
     Indication: COLORECTAL CANCER METASTATIC
     Dosage: 30 MIN IN EVERY 2 WEEKS
     Route: 042
  2. TIPIRACIL HYDROCHLORIDE;TRIFLURIDINE [Suspect]
     Active Substance: TIPIRACIL HYDROCHLORIDE\TRIFLURIDINE
     Indication: COLORECTAL CANCER METASTATIC
     Dosage: DAYS 1 -5 AND 15 -19 IN A 4-WEEKS CYCLE
     Route: 048

REACTIONS (9)
  - Leukopenia [Unknown]
  - Nausea [Unknown]
  - Neutropenia [Unknown]
  - Anaemia [Unknown]
  - Proteinuria [Unknown]
  - Hypertension [Unknown]
  - Blood creatinine increased [Unknown]
  - Fatigue [Unknown]
  - Decreased appetite [Unknown]
